FAERS Safety Report 6016488-9 (Version None)
Quarter: 2008Q4

REPORT INFORMATION
  Report Type: 
  Country: None (occurrence: None)
  Receive Date: 20081222
  Receipt Date: 20081210
  Transmission Date: 20090506
  Serious: Yes (Other)
  Sender: FDA-Public Use
  Company Number: FR-PFIZER INC-2008153103

PATIENT

DRUGS (3)
  1. LYRICA [Suspect]
     Indication: EPILEPSY
     Dosage: 150 MG, 1X/DAY
  2. NEURONTIN [Suspect]
  3. ANTIHYPERTENSIVES [Concomitant]

REACTIONS (7)
  - DRUG INEFFECTIVE [None]
  - ERECTILE DYSFUNCTION [None]
  - LIBIDO DISORDER [None]
  - TREMOR [None]
  - VISION BLURRED [None]
  - VISUAL ACUITY REDUCED [None]
  - WEIGHT INCREASED [None]
